FAERS Safety Report 8891333 (Version 1)
Quarter: 2012Q4

REPORT INFORMATION
  Report Type: Spontaneous
  Country: US (occurrence: None)
  Receive Date: 20121105
  Receipt Date: 20121105
  Transmission Date: 20130627
  Serious: Yes (Hospitalization)
  Sender: FDA-Public Use
  Company Number: None

PATIENT
  Sex: Female
  Weight: 74.84 kg

DRUGS (1)
  1. RANEXA [Suspect]
     Indication: CARDIAC DISORDER
     Dosage: 1 tablet, twice a day, mouth
     Route: 048
     Dates: start: 20120905

REACTIONS (6)
  - Nausea [None]
  - Asthenia [None]
  - Haemorrhoids [None]
  - Constipation [None]
  - Dizziness [None]
  - Pain [None]
